FAERS Safety Report 11862969 (Version 2)
Quarter: 2016Q2

REPORT INFORMATION
  Report Type: Report from Study
  Country: US (occurrence: US)
  Receive Date: 20151223
  Receipt Date: 20160429
  Transmission Date: 20160815
  Serious: Yes (Other)
  Sender: FDA-Public Use
  Company Number: US-AMGEN-USASL2015135433

PATIENT
  Age: 32 Year
  Sex: Female

DRUGS (4)
  1. ENBREL [Suspect]
     Active Substance: ETANERCEPT
     Dosage: 50 MG, QWK
     Route: 065
     Dates: start: 201604
  2. PLAQUENIL                          /00072602/ [Concomitant]
     Active Substance: HYDROXYCHLOROQUINE DIPHOSPHATE
     Dosage: UNK
  3. ENBREL [Suspect]
     Active Substance: ETANERCEPT
     Indication: RHEUMATOID ARTHRITIS
     Dosage: 50 MG, QWK
     Route: 065
     Dates: start: 20150225, end: 20160403
  4. METHOTREXATE [Concomitant]
     Active Substance: METHOTREXATE
     Dosage: UNK

REACTIONS (16)
  - Laboratory test abnormal [Unknown]
  - Activities of daily living impaired [Unknown]
  - Nasopharyngitis [Unknown]
  - Autoimmune thyroiditis [Unknown]
  - Memory impairment [Not Recovered/Not Resolved]
  - Brain oedema [Unknown]
  - Migraine [Unknown]
  - Cognitive disorder [Unknown]
  - Dysarthria [Unknown]
  - Sputum discoloured [Unknown]
  - Seizure [Unknown]
  - Subcutaneous abscess [Unknown]
  - Productive cough [Not Recovered/Not Resolved]
  - Pneumonia [Unknown]
  - Hashimoto^s encephalopathy [Unknown]
  - Dyspnoea [Not Recovered/Not Resolved]

NARRATIVE: CASE EVENT DATE: 2015
